FAERS Safety Report 5393915-1 (Version None)
Quarter: 2007Q3

REPORT INFORMATION
  Report Type: 
  Country: None (occurrence: None)
  Receive Date: 20070723
  Receipt Date: 20061102
  Transmission Date: 20080115
  Serious: No
  Sender: FDA-Public Use
  Company Number: A0626034A

PATIENT
  Sex: Male

DRUGS (8)
  1. AVANDIA [Suspect]
     Indication: DRUG USE FOR UNKNOWN INDICATION
     Dosage: 8MG PER DAY
     Route: 048
     Dates: end: 20061029
  2. SIMVASTATIN [Concomitant]
  3. LISINOPRIL [Concomitant]
  4. DILTIAZEM [Concomitant]
  5. GLYBURIDE [Concomitant]
  6. COUMADIN [Concomitant]
  7. PREVACID [Concomitant]
  8. FERROUS SULFATE [Concomitant]

REACTIONS (4)
  - BURNING SENSATION [None]
  - EYE SWELLING [None]
  - SINUS HEADACHE [None]
  - SINUS OPERATION [None]
